FAERS Safety Report 24413412 (Version 2)
Quarter: 2024Q4

REPORT INFORMATION
  Report Type: Report from Study
  Country: CZ (occurrence: CZ)
  Receive Date: 20241008
  Receipt Date: 20241129
  Transmission Date: 20250114
  Serious: Yes (Hospitalization, Other)
  Sender: SAMSUNG BIOEPIS
  Company Number: CZ-SAMSUNG BIOEPIS-SB-2024-29781

PATIENT
  Age: 47 Year
  Sex: Female

DRUGS (8)
  1. IMRALDI [Suspect]
     Active Substance: ADALIMUMAB
     Indication: Rheumatoid arthritis
     Route: 058
     Dates: start: 20230313, end: 20240429
  2. ALPROSTADIL ALFADEX [Suspect]
     Active Substance: ALPROSTADIL ALFADEX
  3. MEDROL [Concomitant]
     Active Substance: METHYLPREDNISOLONE
     Indication: Product used for unknown indication
  4. MEDROL [Concomitant]
     Active Substance: METHYLPREDNISOLONE
  5. ASPIRIN [Concomitant]
     Active Substance: ASPIRIN
     Indication: Product used for unknown indication
  6. ROSUVASTATIN CALCIUM [Concomitant]
     Active Substance: ROSUVASTATIN CALCIUM
     Indication: Product used for unknown indication
  7. OMEPRAZOLE [Concomitant]
     Active Substance: OMEPRAZOLE
     Indication: Product used for unknown indication
  8. NOVALGIN [Concomitant]
     Indication: Product used for unknown indication

REACTIONS (19)
  - C-reactive protein increased [Recovering/Resolving]
  - Transient ischaemic attack [Recovered/Resolved]
  - Back pain [Unknown]
  - Chest pain [Unknown]
  - Palpitations [Unknown]
  - Hyperventilation [Unknown]
  - Sinusitis [Unknown]
  - Tachycardia [Unknown]
  - Electrocardiogram abnormal [Unknown]
  - Pleural effusion [Unknown]
  - Infection [Unknown]
  - Vasculitis [Unknown]
  - Candida infection [Unknown]
  - Aspergillus infection [Unknown]
  - Helicobacter infection [Unknown]
  - Pulmonary mass [Unknown]
  - Arthralgia [Unknown]
  - Achenbach syndrome [Unknown]
  - Arthritis [Unknown]

NARRATIVE: CASE EVENT DATE: 20230601
